FAERS Safety Report 7866994-7 (Version None)
Quarter: 2011Q4

REPORT INFORMATION
  Report Type: 
  Country: None (occurrence: None)
  Receive Date: 20111028
  Receipt Date: 20111025
  Transmission Date: 20120403
  Serious: Yes (Life-Threatening)
  Sender: FDA-Public Use
  Company Number: PA-ROCHE-1004062

PATIENT
  Sex: Female

DRUGS (5)
  1. METHYLPREDNISOLONE [Concomitant]
     Route: 042
     Dates: start: 20111010, end: 20111010
  2. CHLORPHENIRAMINE MALEATE [Concomitant]
     Dates: start: 20111010, end: 20111010
  3. RITUXIMAB [Suspect]
     Indication: PRODUCT USED FOR UNKNOWN INDICATION
     Route: 042
     Dates: start: 20111010, end: 20111010
  4. DIPHENHYDRAMINE HCL [Concomitant]
     Route: 048
     Dates: start: 20111010, end: 20111010
  5. ACETAMINOPHEN [Concomitant]
     Dates: start: 20111010, end: 20111010

REACTIONS (4)
  - ERYTHEMA [None]
  - COUGH [None]
  - RESTLESSNESS [None]
  - PRURITUS [None]
